FAERS Safety Report 19762828 (Version 1)
Quarter: 2021Q3

REPORT INFORMATION
  Report Type: Spontaneous
  Country: MX (occurrence: MX)
  Receive Date: 20210830
  Receipt Date: 20210830
  Transmission Date: 20211014
  Serious: Yes (Death)
  Sender: FDA-Public Use
  Company Number: MX-ROCHE-2899506

PATIENT
  Sex: Male

DRUGS (1)
  1. ROACTEMRA [Suspect]
     Active Substance: TOCILIZUMAB
     Indication: COVID-19
     Dosage: DOSE AND FREQUENCY WERE NOT REPORTED ? 2 DOSES
     Route: 065

REACTIONS (3)
  - Off label use [Unknown]
  - COVID-19 [Fatal]
  - Suspected counterfeit product [Unknown]
